FAERS Safety Report 9875849 (Version 1)
Quarter: 2013Q2

REPORT INFORMATION
  Report Type: Spontaneous
  Country: US (occurrence: None)
  Receive Date: 20121128
  Receipt Date: 20121128
  Transmission Date: 20140414
  Serious: Yes (Other)
  Sender: FDA-Public Use
  Company Number: TRP_07119_2010

PATIENT
  Age: 53 Year
  Sex: Male
  Weight: 103.87 kg

DRUGS (12)
  1. INTERFERON ALFACON-1 [Suspect]
     Indication: CHRONIC HEPATITIS C
     Route: 058
     Dates: start: 20100713
  2. COPEGUS (RIBAVIRIN) UNSPECIFIED) [Suspect]
     Indication: CHRONIC HEPATITIS C
     Dosage: 1000 MILLIGRAM (600 MG QAM AND 400 MG QPM), ORAL
     Route: 048
     Dates: start: 20100713
  3. MORPHINE [Concomitant]
  4. ASA [Concomitant]
  5. METOPROLOL [Concomitant]
  6. PAROXETINE [Concomitant]
  7. SIMVASTATIN [Concomitant]
  8. LISINOPRIL [Concomitant]
  9. OMEPRAZOLE [Concomitant]
  10. CITALOPRAM [Concomitant]
  11. PLAVIX [Concomitant]
  12. VALIUM [Concomitant]

REACTIONS (8)
  - Pain [None]
  - Myalgia [None]
  - Insomnia [None]
  - Chills [None]
  - Hyperhidrosis [None]
  - Decreased appetite [None]
  - Nausea [None]
  - Memory impairment [None]
